FAERS Safety Report 18368066 (Version 1)
Quarter: 2020Q4

REPORT INFORMATION
  Report Type: Not Available
  Country: US (occurrence: US)
  Receive Date: 20201009
  Receipt Date: 20201009
  Transmission Date: 20210114
  Serious: Yes (Hospitalization)
  Sender: FDA-Public Use
  Company Number: US-NEUROCRINE BIOSCIENCES INC.-2020NBI03563

PATIENT
  Age: 35 Year
  Sex: Female

DRUGS (9)
  1. AMBIEN [Concomitant]
     Active Substance: ZOLPIDEM TARTRATE
  2. INGREZZA [Suspect]
     Active Substance: VALBENAZINE
     Indication: TARDIVE DYSKINESIA
     Route: 048
     Dates: start: 20200730
  3. LAMICTAL [Concomitant]
     Active Substance: LAMOTRIGINE
  4. ABILIFY [Concomitant]
     Active Substance: ARIPIPRAZOLE
  5. SEROQUEL [Concomitant]
     Active Substance: QUETIAPINE FUMARATE
  6. PRAZOSIN. [Concomitant]
     Active Substance: PRAZOSIN
  7. IBUPROFEN. [Concomitant]
     Active Substance: IBUPROFEN
  8. CLONAZEPAM. [Concomitant]
     Active Substance: CLONAZEPAM
  9. GABAPENTIN. [Concomitant]
     Active Substance: GABAPENTIN

REACTIONS (1)
  - Abdominal pain upper [Recovered/Resolved]

NARRATIVE: CASE EVENT DATE: 20200922
